FAERS Safety Report 10192464 (Version 1)
Quarter: 2014Q2

REPORT INFORMATION
  Report Type: Spontaneous
  Country: US (occurrence: US)
  Receive Date: 20140523
  Receipt Date: 20140523
  Transmission Date: 20141212
  Serious: Yes (Hospitalization, Other)
  Sender: FDA-Public Use
  Company Number: US-ACTAVIS-2014-11009

PATIENT
  Age: 34 Year
  Sex: Female

DRUGS (4)
  1. CARBOPLATIN (WATSON LABORATORIES) [Suspect]
     Indication: GESTATIONAL TROPHOBLASTIC TUMOUR
     Dosage: 300 MG/M2, UNK, DAY 1-4, 4 HOURS
     Route: 042
  2. ETOPOSIDE (WATSON LABORATORIES) [Suspect]
     Indication: GESTATIONAL TROPHOBLASTIC TUMOUR
     Dosage: 200 MG/M2, BID, EVERY 12 HOURS, 3 HOURS, 6 DOSES
     Route: 042
  3. IFOSFAMIDE [Suspect]
     Indication: GESTATIONAL TROPHOBLASTIC TUMOUR
     Dosage: 3000 MG/M2, UNK, DAYS 1-4, 4 HOURS
     Route: 042
  4. MESNA [Suspect]
     Indication: GESTATIONAL TROPHOBLASTIC TUMOUR
     Dosage: 3000 MG/M2, UNK, DAYS 1-4, 6 HOURS
     Route: 042

REACTIONS (3)
  - Febrile neutropenia [Recovered/Resolved]
  - Stomatitis [Unknown]
  - Syncope [Recovered/Resolved]
